FAERS Safety Report 18326321 (Version 1)
Quarter: 2020Q3

REPORT INFORMATION
  Report Type: Spontaneous
  Country: DE (occurrence: DE)
  Receive Date: 20200929
  Receipt Date: 20200929
  Transmission Date: 20201103
  Serious: Yes (Hospitalization)
  Sender: FDA-Public Use
  Company Number: DE-MYLANLABS-2020M1082177

PATIENT
  Age: 83 Year
  Sex: Male

DRUGS (11)
  1. ATORVASTATIN [Concomitant]
     Active Substance: ATORVASTATIN
     Dosage: 40 MG, 0?0?1?0
  2. CRATAEGUTT NOVO                    /01349302/ [Concomitant]
     Dosage: 450 MG, 1?0?1?0
  3. XIPAMIDE [Suspect]
     Active Substance: XIPAMIDE
     Indication: PRODUCT USED FOR UNKNOWN INDICATION
     Dosage: 10 MG, 1?0?0?0
  4. DIGITOXIN [Concomitant]
     Active Substance: DIGITOXIN
     Dosage: 0.07 MG, 1?0?0?0
  5. SPIRIVA RESPIMAT [Concomitant]
     Active Substance: TIOTROPIUM BROMIDE
     Dosage: 2.5 ?G, 1?0?0?0
  6. EZETIMIB MEPHA TEVA [Concomitant]
     Dosage: 10 MG, 1?0?0?0
  7. ALLOPURINOL. [Concomitant]
     Active Substance: ALLOPURINOL
     Dosage: 0?0?0?1
  8. SALBUTAMOL [Concomitant]
     Active Substance: ALBUTEROL
     Dosage: BEI BEDARF
  9. PHENPROCOUMON [Concomitant]
     Active Substance: PHENPROCOUMON
     Dosage: 3 MG, NACH INR
  10. METOPROLOL. [Suspect]
     Active Substance: METOPROLOL
     Indication: PRODUCT USED FOR UNKNOWN INDICATION
     Dosage: 47.5 MG, 0.5?0?1?0
  11. TORASEMIDE [Suspect]
     Active Substance: TORSEMIDE
     Indication: PRODUCT USED FOR UNKNOWN INDICATION
     Dosage: 10 MG, 1?0?0?0

REACTIONS (9)
  - Dizziness [Unknown]
  - Weight decreased [Unknown]
  - Electrolyte imbalance [Unknown]
  - Hypotension [Unknown]
  - Dyspnoea [Unknown]
  - Wheezing [Unknown]
  - Chest pain [Unknown]
  - Hypokalaemia [Unknown]
  - Dehydration [Unknown]
